FAERS Safety Report 7073189-6 (Version None)
Quarter: 2010Q4

REPORT INFORMATION
  Report Type: 
  Country: None (occurrence: None)
  Receive Date: 20101029
  Receipt Date: 20100604
  Transmission Date: 20110411
  Serious: No
  Sender: FDA-Public Use
  Company Number: A0858693A

PATIENT
  Age: 72 Year
  Sex: Male

DRUGS (9)
  1. ADVAIR DISKUS 100/50 [Suspect]
     Indication: CHRONIC OBSTRUCTIVE PULMONARY DISEASE
     Dosage: 1PUFF TWICE PER DAY
     Route: 055
     Dates: start: 20100429
  2. DIAZEPAM [Concomitant]
  3. DIAZIDE [Concomitant]
  4. CYMBALTA [Concomitant]
  5. LAMOTRIGINE [Concomitant]
  6. WELLBUTRIN [Concomitant]
  7. AVODART [Concomitant]
  8. HYTRIN [Concomitant]
  9. IBUPROFEN [Concomitant]

REACTIONS (2)
  - DRUG INEFFECTIVE [None]
  - PRODUCT QUALITY ISSUE [None]
